FAERS Safety Report 22237751 (Version 2)
Quarter: 2023Q2

REPORT INFORMATION
  Report Type: Report from Study
  Country: BR (occurrence: BR)
  Receive Date: 20230421
  Receipt Date: 20230507
  Transmission Date: 20230722
  Serious: Yes (Hospitalization, Other)
  Sender: FDA-Public Use
  Company Number: BR-JNJFOC-20220845264

PATIENT
  Age: 58 Year
  Sex: Male
  Weight: 56 kg

DRUGS (3)
  1. REMICADE [Suspect]
     Active Substance: INFLIXIMAB
     Indication: Crohn^s disease
     Dosage: 3 VIALS
     Route: 041
     Dates: start: 20120418
  2. REMICADE [Suspect]
     Active Substance: INFLIXIMAB
     Dosage: 3 VIALS
     Route: 041
  3. INFLIXIMAB [Suspect]
     Active Substance: INFLIXIMAB
     Indication: Crohn^s disease
     Route: 065

REACTIONS (10)
  - Splenomegaly [Unknown]
  - Crohn^s disease [Unknown]
  - Surgery [Unknown]
  - Malaise [Recovering/Resolving]
  - Weight decreased [Unknown]
  - Vomiting [Recovered/Resolved]
  - Abdominal pain upper [Not Recovered/Not Resolved]
  - Fungal infection [Unknown]
  - Drug ineffective [Unknown]
  - Off label use [Unknown]

NARRATIVE: CASE EVENT DATE: 20220701
